FAERS Safety Report 20489229 (Version 1)
Quarter: 2022Q1

REPORT INFORMATION
  Report Type: Spontaneous
  Country: US (occurrence: None)
  Receive Date: 20220217
  Receipt Date: 20220217
  Transmission Date: 20220423
  Serious: Yes (Life-Threatening, Hospitalization)
  Sender: FDA-Public Use
  Company Number: None

PATIENT
  Age: 44 Year
  Sex: Male
  Weight: 96 kg

DRUGS (1)
  1. PENTAMIDINE [Suspect]
     Active Substance: PENTAMIDINE
     Indication: Antifungal prophylaxis
     Dosage: 300 MG ONCE?
     Route: 041
     Dates: start: 20220117, end: 20220117

REACTIONS (5)
  - Tachycardia [None]
  - Pyrexia [None]
  - Hypotension [None]
  - Myocarditis [None]
  - Infusion related reaction [None]

NARRATIVE: CASE EVENT DATE: 20220117
